FAERS Safety Report 9324991 (Version 2)
Quarter: 2013Q2

REPORT INFORMATION
  Report Type: Spontaneous
  Country: JP (occurrence: JP)
  Receive Date: 20130603
  Receipt Date: 20130617
  Transmission Date: 20140414
  Serious: Yes (Life-Threatening)
  Sender: FDA-Public Use
  Company Number: JP-ABBOTT-13P-087-1096950-00

PATIENT
  Age: 49 Year
  Sex: Female

DRUGS (4)
  1. LEUPLIN [Suspect]
     Indication: BREAST CANCER
     Route: 058
     Dates: start: 20130322, end: 20130416
  2. LEUPLIN [Suspect]
     Indication: PROPHYLAXIS
  3. NOLVADEX [Suspect]
     Indication: BREAST CANCER
     Route: 048
     Dates: start: 20120623, end: 20130322
  4. NOLVADEX [Suspect]
     Indication: PROPHYLAXIS

REACTIONS (1)
  - Brain neoplasm [Unknown]
